FAERS Safety Report 10055707 (Version 1)
Quarter: 2014Q2

REPORT INFORMATION
  Report Type: Spontaneous
  Country: GB (occurrence: GB)
  Receive Date: 20140403
  Receipt Date: 20140403
  Transmission Date: 20141212
  Serious: Yes (Disabling, Other)
  Sender: FDA-Public Use
  Company Number: GB-AMGEN-GBRSP2014023246

PATIENT
  Age: 48 Year
  Sex: Male
  Weight: 80 kg

DRUGS (1)
  1. ENBREL [Suspect]
     Indication: PSORIASIS
     Dosage: 25 MG, 2X/WEEK
     Route: 058
     Dates: start: 20110131, end: 20111114

REACTIONS (4)
  - Ulcerative keratitis [Not Recovered/Not Resolved]
  - Blindness [Not Recovered/Not Resolved]
  - Immunosuppression [Unknown]
  - Eye infection [Recovered/Resolved with Sequelae]
